FAERS Safety Report 9112839 (Version 1)
Quarter: 2013Q1

REPORT INFORMATION
  Report Type: Spontaneous
  Country: US (occurrence: US)
  Receive Date: 20130211
  Receipt Date: 20130211
  Transmission Date: 20140127
  Serious: No
  Sender: FDA-Public Use
  Company Number: US-PFIZER INC-2013051633

PATIENT
  Age: 19 Year
  Sex: Female

DRUGS (8)
  1. IBUPROFEN [Suspect]
  2. ZITHROMAX [Suspect]
  3. CLEOCIN [Suspect]
  4. BIAXIN [Suspect]
  5. CEFONICID [Suspect]
  6. CEFZIL [Suspect]
  7. CODEINE [Suspect]
  8. PENICILLIN [Suspect]

REACTIONS (1)
  - Drug hypersensitivity [Unknown]
